FAERS Safety Report 23558307 (Version 1)
Quarter: 2024Q1

REPORT INFORMATION
  Report Type: Spontaneous
  Country: US (occurrence: US)
  Receive Date: 20240223
  Receipt Date: 20240223
  Transmission Date: 20240410
  Serious: Yes (Hospitalization)
  Sender: FDA-Public Use
  Company Number: US-FMCRTG-FMC-2402-000180

PATIENT
  Age: 64 Year
  Sex: Female

DRUGS (2)
  1. DELFLEX WITH DEXTROSE 1.5% LOW MAGNESIUM LOW CALCIUM [Suspect]
     Active Substance: CALCIUM CHLORIDE\DEXTROSE\MAGNESIUM CHLORIDE\SODIUM CHLORIDE\SODIUM LACTATE
     Indication: End stage renal disease
     Dosage: FILLS = 6; FILL VOLUME = 1500 ML; LAST FILL VOLUME = 0ML; TOTAL VOLUME = 9000 ML; TOTAL SLEEP TIME =
     Route: 033
  2. DELFLEX WITH DEXTROSE 2.5% LOW MAGNESIUM LOW CALCIUM [Suspect]
     Active Substance: CALCIUM CHLORIDE\DEXTROSE\MAGNESIUM CHLORIDE\SODIUM CHLORIDE\SODIUM LACTATE
     Indication: End stage renal disease
     Dosage: FILLS = 6; FILL VOLUME = 1500 ML; LAST FILL VOLUME = 0ML; TOTAL VOLUME = 9000 ML; TOTAL SLEEP TIME =
     Route: 033

REACTIONS (1)
  - Hypervolaemia [Recovering/Resolving]

NARRATIVE: CASE EVENT DATE: 20240205
